FAERS Safety Report 25973693 (Version 1)
Quarter: 2025Q4

REPORT INFORMATION
  Report Type: Spontaneous
  Country: US (occurrence: US)
  Receive Date: 20251029
  Receipt Date: 20251029
  Transmission Date: 20260118
  Serious: No
  Sender: AMNEAL
  Company Number: US-AMNEAL PHARMACEUTICALS-2024-AMRX-04203

PATIENT
  Age: 54 Year
  Sex: Female

DRUGS (6)
  1. PROGESTERONE [Suspect]
     Active Substance: PROGESTERONE
     Indication: Product used for unknown indication
  2. COMBIPATCH [Concomitant]
     Active Substance: ESTRADIOL\NORETHINDRONE ACETATE
     Indication: Menopausal symptoms
     Dosage: 50/140 DOSE; 0.05/0.14 MILLIGRAM
     Route: 065
     Dates: start: 202405
  3. COMBIPATCH [Concomitant]
     Active Substance: ESTRADIOL\NORETHINDRONE ACETATE
     Dosage: 50/250 DOSE; 0.05/0.25 MILLIGRAM
     Route: 065
     Dates: start: 202407
  4. COMBIPATCH [Concomitant]
     Active Substance: ESTRADIOL\NORETHINDRONE ACETATE
     Dosage: 50/140 DOSE; 0.05/0.14 MILLIGRAM
     Route: 065
     Dates: start: 202408
  5. ESTROGENS [Concomitant]
     Active Substance: ESTROGENS
     Indication: Product used for unknown indication
     Dosage: ESTROGEN GEL
     Route: 065
     Dates: start: 202406
  6. ENDOMETRIN [Concomitant]
     Active Substance: PROGESTERONE
     Indication: Product used for unknown indication
     Dosage: UNKNOWN
     Route: 067

REACTIONS (1)
  - Anxiety [Unknown]
